FAERS Safety Report 12378522 (Version 2)
Quarter: 2016Q3

REPORT INFORMATION
  Report Type: Spontaneous
  Country: US (occurrence: US)
  Receive Date: 20160517
  Receipt Date: 20160901
  Transmission Date: 20161109
  Serious: No
  Sender: FDA-Public Use
  Company Number: US-RELYPSA-RLY2016000197

PATIENT
  Sex: Male

DRUGS (8)
  1. ATORVASTATIN CALCIUM. [Concomitant]
     Active Substance: ATORVASTATIN CALCIUM
  2. ISOSORBIDE                         /07346401/ [Concomitant]
  3. DINITRATE D ISOSORBIDE MERCK [Concomitant]
  4. COUMADINE [Concomitant]
     Active Substance: WARFARIN SODIUM
  5. VELTASSA [Suspect]
     Active Substance: PATIROMER
     Indication: HYPERKALAEMIA
     Dosage: 8.4 G, QD
     Route: 048
     Dates: start: 20160302
  6. METOPROLOL TARTRATE. [Concomitant]
     Active Substance: METOPROLOL TARTRATE
  7. LANTUS [Concomitant]
     Active Substance: INSULIN GLARGINE
  8. ASPIRIN                            /00002701/ [Concomitant]
     Active Substance: ASPIRIN

REACTIONS (1)
  - Diarrhoea [Unknown]
